FAERS Safety Report 8892158 (Version 3)
Quarter: 2012Q4

REPORT INFORMATION
  Report Type: 
  Country: US (occurrence: US)
  Receive Date: 20121107
  Receipt Date: 20121217
  Transmission Date: 20130627
  Serious: Yes (Hospitalization)
  Sender: FDA-Public Use
  Company Number: US-GILEAD-2012-0064244

PATIENT
  Sex: Female

DRUGS (3)
  1. LETAIRIS [Suspect]
     Indication: PULMONARY ARTERIAL HYPERTENSION
     Dosage: 10 mg, QD
     Route: 048
     Dates: start: 20090218
  2. VENTAVIS [Concomitant]
  3. REVATIO [Concomitant]

REACTIONS (7)
  - Pulmonary arterial hypertension [Unknown]
  - Hypercalcaemia [Unknown]
  - Hyperkalaemia [Unknown]
  - Mental status changes [Unknown]
  - Parathyroidectomy [Unknown]
  - Ulcer [Unknown]
  - Thyroidectomy [Unknown]
